FAERS Safety Report 4642506-6 (Version None)
Quarter: 2005Q2

REPORT INFORMATION
  Report Type: 
  Country: None (occurrence: None)
  Receive Date: 20050422
  Receipt Date: 20050413
  Transmission Date: 20051028
  Serious: Yes (Hospitalization)
  Sender: FDA-Public Use
  Company Number: FR-ROCHE-401742

PATIENT
  Age: 34 Year
  Sex: Female

DRUGS (6)
  1. NICARDIPINE HCL [Suspect]
     Route: 041
     Dates: start: 20050124, end: 20050125
  2. NICARDIPINE HCL [Suspect]
     Dosage: STARTED WITH 2MG/H, THEN INCREASED UP TO 3MG/H THE SAME DAY. DISCONTINUED A FEW HOURS LATER.
     Route: 041
     Dates: start: 20050120, end: 20050120
  3. NICARDIPINE HCL [Suspect]
     Dosage: RESTARTED AT 2MG/H. THEN INCREASED TO 3MG/H UNTIL 23 JAN 2005.
     Route: 041
     Dates: start: 20050122, end: 20050123
  4. CELESTENE [Concomitant]
  5. BIONOLYTE [Concomitant]
     Dosage: DOSE: 2
     Route: 041
     Dates: start: 20050122, end: 20050123
  6. TRACTOCILE [Concomitant]
     Dosage: INTRODUCED AT 8ML PER 1 HOUR. STOPPED ON 21 JAN 05. RESTARTED ON 25 JAN 05 AT 112.5MG A DAY AND STO+
     Route: 041
     Dates: start: 20050120, end: 20050127

REACTIONS (2)
  - ACUTE PULMONARY OEDEMA [None]
  - HYPERKINETIC HEART SYNDROME [None]
